FAERS Safety Report 8621971-3 (Version None)
Quarter: 2012Q3

REPORT INFORMATION
  Report Type: 
  Country: None (occurrence: None)
  Receive Date: 20120823
  Receipt Date: 20120823
  Transmission Date: 20120928
  Serious: Yes (Hospitalization)
  Sender: FDA-Public Use
  Company Number: None

PATIENT
  Sex: Female
  Weight: 81.8 kg

DRUGS (5)
  1. CYCLOPHOSPHAMIDE [Suspect]
     Dosage: 1400 MG
  2. VINCRISTINE SULFATE [Suspect]
     Dosage: 2 MG
  3. PREDNISONE [Suspect]
     Dosage: 375 MG
  4. RITUXIMAB (MOAB C2B8 ANTI CD20, CHIMERIC) [Suspect]
     Dosage: 700 MG
  5. DOXORUBICIN HYDROCHLORIDE [Suspect]
     Dosage: 94 MG

REACTIONS (5)
  - PANCYTOPENIA [None]
  - PYREXIA [None]
  - CHEST PAIN [None]
  - NEUTROPENIA [None]
  - DYSPNOEA [None]
